FAERS Safety Report 5378109-8 (Version None)
Quarter: 2007Q3

REPORT INFORMATION
  Report Type: 
  Country: None (occurrence: None)
  Receive Date: 20070705
  Receipt Date: 20070622
  Transmission Date: 20080115
  Serious: Yes (Hospitalization)
  Sender: FDA-Public Use
  Company Number: PHBS2007CH10494

PATIENT
  Age: 28 Year
  Sex: Female

DRUGS (1)
  1. LUDIOMIL [Suspect]
     Dosage: 1 DOSAGE FROM/DAY
     Dates: end: 20061106

REACTIONS (7)
  - DYSURIA [None]
  - NEPHROLITHIASIS [None]
  - POLLAKIURIA [None]
  - RENAL CYST [None]
  - RENAL PAIN [None]
  - URINARY RETENTION [None]
  - URINARY TRACT INFECTION [None]
